FAERS Safety Report 8260801-9 (Version None)
Quarter: 2012Q1

REPORT INFORMATION
  Report Type: 
  Country: None (occurrence: None)
  Receive Date: 20120327
  Receipt Date: 20090319
  Transmission Date: 20120608
  Serious: Yes (Life-Threatening, Hospitalization)
  Sender: FDA-Public Use
  Company Number: PHEH2009US02813

PATIENT
  Age: 43 Year
  Sex: Female

DRUGS (1)
  1. GLEEVEC [Suspect]
     Dosage: 400 MG, BID, ORAL
     Route: 048
     Dates: start: 20081201, end: 20090301

REACTIONS (4)
  - DEHYDRATION [None]
  - VOMITING [None]
  - DIARRHOEA [None]
  - MALAISE [None]
